FAERS Safety Report 6710722-5 (Version None)
Quarter: 2010Q2

REPORT INFORMATION
  Report Type: 
  Country: None (occurrence: None)
  Receive Date: 20100504
  Receipt Date: 20100504
  Transmission Date: 20101027
  Serious: Yes (Hospitalization)
  Sender: FDA-Public Use
  Company Number: None

PATIENT
  Weight: 73.3 kg

DRUGS (3)
  1. VINORELBINE TARTRATE [Suspect]
     Indication: BREAST CANCER METASTATIC
     Dosage: 36 MG
     Dates: start: 20100129, end: 20100129
  2. SORAFENIB 200 MG [Suspect]
     Dosage: 200 MG PO BID
     Route: 048
     Dates: start: 20100129, end: 20100131
  3. ZOMETA [Concomitant]

REACTIONS (2)
  - PYREXIA [None]
  - SEPSIS [None]
